FAERS Safety Report 7542359-2 (Version None)
Quarter: 2011Q2

REPORT INFORMATION
  Report Type: 
  Country: None (occurrence: None)
  Receive Date: 20110524
  Receipt Date: 20110316
  Transmission Date: 20111010
  Serious: No
  Sender: FDA-Public Use
  Company Number: 025835

PATIENT
  Sex: Female
  Weight: 63.5 kg

DRUGS (5)
  1. CIMZIA [Suspect]
     Indication: CROHN'S DISEASE
     Dosage: 400 MG 1X/MONTH SUBCUTANEOUS
     Route: 058
     Dates: start: 20101015
  2. DIPHENOXYLATE [Concomitant]
  3. COLESTID [Concomitant]
  4. IZOFRAN /00955301/ [Concomitant]
  5. FLEXERIL [Concomitant]

REACTIONS (4)
  - INJECTION SITE SWELLING [None]
  - DIARRHOEA [None]
  - ASTHENIA [None]
  - MALAISE [None]
